FAERS Safety Report 5771884-X (Version None)
Quarter: 2008Q2

REPORT INFORMATION
  Report Type: 
  Country: None (occurrence: None)
  Receive Date: 20080613
  Receipt Date: 20080606
  Transmission Date: 20081010
  Serious: Yes (Hospitalization)
  Sender: FDA-Public Use
  Company Number: B0524182A

PATIENT
  Age: 56 Year
  Sex: Female

DRUGS (7)
  1. AMOXICILLIN [Suspect]
     Indication: DENTAL TREATMENT
     Route: 048
     Dates: start: 20050804, end: 20050807
  2. AMPICILLIN [Suspect]
     Route: 065
  3. PENICILLIN G [Concomitant]
     Route: 065
  4. CEFDINIR [Concomitant]
     Route: 065
  5. CEFUROXIME AXETIL [Concomitant]
     Route: 065
  6. IBUROFEN [Concomitant]
     Route: 065
  7. LYSOZYME HYDROCHLORIDE [Concomitant]
     Route: 065

REACTIONS (10)
  - BLOOD ALBUMIN DECREASED [None]
  - C-REACTIVE PROTEIN INCREASED [None]
  - DRUG ERUPTION [None]
  - DRUG HYPERSENSITIVITY [None]
  - DRUG INTERACTION [None]
  - DYSPNOEA [None]
  - EOSINOPHIL COUNT INCREASED [None]
  - ERYTHEMA [None]
  - PROTEIN TOTAL DECREASED [None]
  - PRURITUS [None]
